FAERS Safety Report 4763424-9 (Version None)
Quarter: 2005Q3

REPORT INFORMATION
  Report Type: 
  Country: None (occurrence: None)
  Receive Date: 20050907
  Receipt Date: 20050907
  Transmission Date: 20060218
  Serious: Yes (Other)
  Sender: FDA-Public Use
  Company Number: None

PATIENT
  Age: 23 Year
  Sex: Female
  Weight: 76.2043 kg

DRUGS (2)
  1. DESOGEN [Suspect]
     Indication: MENSTRUAL DISORDER
     Dosage: DAILY  PO
     Route: 048
     Dates: start: 19951001, end: 19991001
  2. LO-ESTEN     28 DAY REGIMEN      SAME AS ABOVE [Suspect]
     Indication: MENSTRUAL DISORDER
     Dosage: DAILY    PO
     Route: 048
     Dates: start: 19991001, end: 20011101

REACTIONS (13)
  - ALOPECIA [None]
  - ARTHROPATHY [None]
  - BONE DENSITY DECREASED [None]
  - BREAST ATROPHY [None]
  - DEPRESSION [None]
  - INSOMNIA [None]
  - MOOD SWINGS [None]
  - MUSCLE ATROPHY [None]
  - NIGHT SWEATS [None]
  - PHARMACEUTICAL PRODUCT COMPLAINT [None]
  - PITUITARY CYST [None]
  - SEXUAL DYSFUNCTION [None]
  - WEIGHT INCREASED [None]
